FAERS Safety Report 18170684 (Version 4)
Quarter: 2020Q4

REPORT INFORMATION
  Report Type: Report from Study
  Country: US (occurrence: US)
  Receive Date: 20200819
  Receipt Date: 20201117
  Transmission Date: 20210113
  Serious: Yes (Hospitalization, Other)
  Sender: FDA-Public Use
  Company Number: US-GLAXOSMITHKLINE-US2019TSO211893

PATIENT
  Age: 61 Year
  Sex: Female
  Weight: 75 kg

DRUGS (14)
  1. NIRAPARIB [Suspect]
     Active Substance: NIRAPARIB
     Dosage: 100 MG, QD QPM W/O FOOD
     Route: 048
     Dates: start: 20191215
  2. NIRAPARIB [Suspect]
     Active Substance: NIRAPARIB
     Dosage: 100 MG, QD
     Dates: start: 20191224
  3. OMEGA 3 [Concomitant]
     Active Substance: OMEGA-3 FATTY ACIDS
     Indication: PRODUCT USED FOR UNKNOWN INDICATION
     Dosage: UNK
  4. FERROUS SULFATE. [Concomitant]
     Active Substance: FERROUS SULFATE
     Indication: PRODUCT USED FOR UNKNOWN INDICATION
     Dosage: UNK
  5. NIRAPARIB [Suspect]
     Active Substance: NIRAPARIB
     Dosage: 300 MG, PER DAY
     Route: 048
     Dates: start: 20191117, end: 20191206
  6. PROCHLORPERAZINE. [Concomitant]
     Active Substance: PROCHLORPERAZINE
     Indication: PRODUCT USED FOR UNKNOWN INDICATION
     Dosage: UNK
  7. NIRAPARIB [Suspect]
     Active Substance: NIRAPARIB
     Dosage: 100 MG, DAILY
     Route: 048
     Dates: start: 20191206, end: 20191223
  8. NIRAPARIB [Suspect]
     Active Substance: NIRAPARIB
     Dosage: 100 MG, QD
     Dates: start: 20200811, end: 20201110
  9. VITAMIN D [Concomitant]
     Active Substance: VITAMIN D NOS
     Indication: PRODUCT USED FOR UNKNOWN INDICATION
     Dosage: UNK
  10. NIRAPARIB [Suspect]
     Active Substance: NIRAPARIB
     Dosage: 100 MG, QD
     Route: 048
  11. MOTRIN [Concomitant]
     Active Substance: IBUPROFEN
     Indication: PRODUCT USED FOR UNKNOWN INDICATION
     Dosage: UNK, PRN(AS REQUIRED)
  12. NIRAPARIB [Suspect]
     Active Substance: NIRAPARIB
     Dosage: 100 MG DAILY
     Route: 048
  13. NIRAPARIB [Suspect]
     Active Substance: NIRAPARIB
     Indication: FALLOPIAN TUBE CANCER
     Dosage: 200 MG AT 10PM USUALLY WITHOUT FOOD
     Route: 048
     Dates: start: 20191112, end: 20191206
  14. IMODINE [Concomitant]
     Active Substance: LOPERAMIDE HYDROCHLORIDE
     Indication: PRODUCT USED FOR UNKNOWN INDICATION
     Dosage: UNK, PRN(AS REQUIRED)

REACTIONS (25)
  - Diarrhoea [Unknown]
  - Lymphoedema [Unknown]
  - Scan abnormal [Unknown]
  - Malignant neoplasm progression [Unknown]
  - Food poisoning [Unknown]
  - Carbohydrate antigen 125 increased [Unknown]
  - Nodule [Unknown]
  - Intestinal obstruction [Unknown]
  - Blood calcium decreased [Unknown]
  - Muscle spasms [Unknown]
  - Product dose omission issue [Not Recovered/Not Resolved]
  - Joint swelling [Recovered/Resolved]
  - Blood pressure increased [Recovered/Resolved]
  - Arthralgia [Not Recovered/Not Resolved]
  - Heart rate increased [Not Recovered/Not Resolved]
  - Fatigue [Not Recovered/Not Resolved]
  - Drug monitoring procedure incorrectly performed [Unknown]
  - Off label use [Unknown]
  - Rash [Unknown]
  - Nausea [Recovered/Resolved]
  - Platelet count decreased [Recovered/Resolved]
  - Myalgia [Not Recovered/Not Resolved]
  - Vomiting [Unknown]
  - Joint swelling [Unknown]
  - Insomnia [Not Recovered/Not Resolved]

NARRATIVE: CASE EVENT DATE: 20191206
